FAERS Safety Report 6772412-2 (Version None)
Quarter: 2010Q2

REPORT INFORMATION
  Report Type: 
  Country: None (occurrence: None)
  Receive Date: 20100616
  Receipt Date: 20090723
  Transmission Date: 20101027
  Serious: Yes (Other)
  Sender: FDA-Public Use
  Company Number: US-ASTRAZENECA-2009UW21124

PATIENT
  Age: 73 Year
  Sex: Female

DRUGS (2)
  1. PULMICORT RESPULES [Suspect]
     Indication: ASTHMA
     Route: 055
  2. ALBUTEROL [Concomitant]

REACTIONS (1)
  - GLAUCOMA [None]
